FAERS Safety Report 8446576-9 (Version None)
Quarter: 2012Q2

REPORT INFORMATION
  Report Type: 
  Country: None (occurrence: None)
  Receive Date: 20120619
  Receipt Date: 20120613
  Transmission Date: 20120825
  Serious: Yes (Other)
  Sender: FDA-Public Use
  Company Number: US-AMGEN-USASP2012037018

PATIENT
  Age: 6 Year
  Sex: Male

DRUGS (6)
  1. DOXORUBICIN HCL [Concomitant]
     Indication: HODGKIN'S DISEASE
  2. VINCRISTINE SULFATE [Concomitant]
     Indication: HODGKIN'S DISEASE
  3. PREDNISONE [Concomitant]
     Indication: HODGKIN'S DISEASE
  4. NEUPOGEN [Suspect]
     Indication: CHEMOTHERAPY
     Dates: start: 20120519
  5. NEUPOGEN [Suspect]
     Indication: NEUTROPENIA
  6. CYCLOPHOSPHAMIDE [Concomitant]
     Indication: HODGKIN'S DISEASE

REACTIONS (4)
  - ACCIDENTAL OVERDOSE [None]
  - ABASIA [None]
  - PAIN [None]
  - INJECTION SITE PAIN [None]
